FAERS Safety Report 6003612-7 (Version None)
Quarter: 2008Q4

REPORT INFORMATION
  Report Type: 
  Country: None (occurrence: None)
  Receive Date: 20081216
  Receipt Date: 20081211
  Transmission Date: 20090506
  Serious: Yes (Other)
  Sender: FDA-Public Use
  Company Number: JP-PFIZER INC-2008152956

PATIENT

DRUGS (2)
  1. NORVASC [Suspect]
     Route: 048
  2. NEO-LOTAN [Concomitant]
     Route: 048

REACTIONS (3)
  - BLOOD THYROID STIMULATING HORMONE DECREASED [None]
  - OEDEMA [None]
  - WEIGHT INCREASED [None]
